FAERS Safety Report 10423994 (Version 1)
Quarter: 2014Q3

REPORT INFORMATION
  Report Type: Spontaneous
  Country: JP (occurrence: JP)
  Receive Date: 20140902
  Receipt Date: 20140902
  Transmission Date: 20150326
  Serious: Yes (Death, Other)
  Sender: FDA-Public Use
  Company Number: JP-PFIZER INC-2014240906

PATIENT
  Age: 29 Year
  Sex: Female
  Weight: 58.7 kg

DRUGS (10)
  1. OMEPRAL [Concomitant]
     Active Substance: OMEPRAZOLE
     Dosage: 20 MG, UNK
     Dates: start: 20140712
  2. DIAPP [Concomitant]
     Active Substance: DIAZEPAM
     Dosage: 10 MG, UNK
     Dates: start: 20140712
  3. FOSPHENYTOIN SODIUM. [Suspect]
     Active Substance: FOSPHENYTOIN SODIUM
     Dosage: 750 MG/KG, DAILY
     Route: 042
     Dates: start: 20140712, end: 20140713
  4. HORIZON [Concomitant]
     Active Substance: DIAZEPAM
     Dosage: 10 MG, UNK
     Dates: start: 20140718
  5. REVONAL [Concomitant]
     Active Substance: METHAQUALONE
     Dosage: 900 MG, UNK
  6. NOBELBAR [Suspect]
     Active Substance: PHENOBARBITAL SODIUM
     Indication: STATUS EPILEPTICUS
     Dosage: 200 MG, UNK
     Dates: start: 20140712
  7. SULBACILLIN [Concomitant]
     Active Substance: AMPICILLIN SODIUM\SULBACTAM SODIUM
     Dosage: 1.5 G, UNK
     Dates: start: 20140712, end: 20140713
  8. FOSPHENYTOIN SODIUM. [Suspect]
     Active Substance: FOSPHENYTOIN SODIUM
     Indication: STATUS EPILEPTICUS
     Dosage: 375 MG/KG/DAY
     Route: 042
     Dates: start: 20140712
  9. HORIZON [Concomitant]
     Active Substance: DIAZEPAM
     Dosage: 20 MG, UNK
     Dates: start: 20140712
  10. REVONAL [Concomitant]
     Active Substance: METHAQUALONE
     Dosage: 150 MG, UNK
     Dates: start: 20140712

REACTIONS (4)
  - Drug ineffective [Unknown]
  - Hepatitis fulminant [Fatal]
  - Acidosis [Unknown]
  - Shock [Unknown]

NARRATIVE: CASE EVENT DATE: 20140714
